FAERS Safety Report 6677793-6 (Version None)
Quarter: 2010Q2

REPORT INFORMATION
  Report Type: 
  Country: None (occurrence: None)
  Receive Date: 20100412
  Receipt Date: 20100401
  Transmission Date: 20101027
  Serious: Yes (Other)
  Sender: FDA-Public Use
  Company Number: US-JNJCH-2010008217

PATIENT
  Age: 8 Year
  Sex: Female
  Weight: 35.4 kg

DRUGS (1)
  1. CHILDREN'S BENADRYL ALLERGY [Suspect]
     Indication: PRURITUS
     Dosage: TEXT:TWO TEASPOONFULS ONCE
     Route: 048
     Dates: start: 20100331, end: 20100331

REACTIONS (4)
  - EXPIRED DRUG ADMINISTERED [None]
  - MUSCLE TWITCHING [None]
  - OFF LABEL USE [None]
  - PRODUCT QUALITY ISSUE [None]
